FAERS Safety Report 24264338 (Version 1)
Quarter: 2024Q3

REPORT INFORMATION
  Report Type: Spontaneous
  Country: US (occurrence: None)
  Receive Date: 20240829
  Receipt Date: 20240829
  Transmission Date: 20241016
  Serious: Yes (Other)
  Sender: ASTRAZENECA
  Company Number: 2024A195527

PATIENT
  Age: 59 Year
  Sex: Male

DRUGS (2)
  1. NEXIUM [Suspect]
     Active Substance: ESOMEPRAZOLE MAGNESIUM
     Route: 048
  2. PROTONIX [Suspect]
     Active Substance: PANTOPRAZOLE SODIUM
     Dosage: 40.0MG UNKNOWN
     Route: 048
     Dates: start: 2017

REACTIONS (11)
  - Oesophageal carcinoma [Unknown]
  - Renal cancer [Unknown]
  - Choking [Unknown]
  - Cardiac disorder [Unknown]
  - Dysphagia [Unknown]
  - Hypersensitivity [Unknown]
  - Hypertension [Unknown]
  - Ear discomfort [Unknown]
  - Rhinorrhoea [Unknown]
  - Vomiting [Unknown]
  - Nausea [Unknown]
